FAERS Safety Report 20098214 (Version 1)
Quarter: 2021Q4

REPORT INFORMATION
  Report Type: Spontaneous
  Country: JP (occurrence: JP)
  Receive Date: 20211122
  Receipt Date: 20211122
  Transmission Date: 20220303
  Serious: Yes (Hospitalization, Other)
  Sender: FDA-Public Use
  Company Number: JP-ONO-2021JP029117

PATIENT
  Age: 74 Year
  Sex: Female

DRUGS (1)
  1. OPDIVO [Suspect]
     Active Substance: NIVOLUMAB
     Indication: Non-small cell lung cancer recurrent
     Dosage: UNK
     Route: 041

REACTIONS (4)
  - Immune-mediated hepatic disorder [Unknown]
  - Immune-mediated enterocolitis [Recovering/Resolving]
  - Interstitial lung disease [Unknown]
  - Diarrhoea [Recovering/Resolving]
